FAERS Safety Report 7466326-2 (Version None)
Quarter: 2011Q2

REPORT INFORMATION
  Report Type: 
  Country: None (occurrence: None)
  Receive Date: 20110509
  Receipt Date: 20100719
  Transmission Date: 20111010
  Serious: No
  Sender: FDA-Public Use
  Company Number: US-ALEXION-A201000844

PATIENT
  Sex: Male

DRUGS (4)
  1. EXJADE [Suspect]
  2. LEVOTHYROXINE SODIUM [Concomitant]
     Indication: THYROID HORMONE REPLACEMENT THERAPY
     Dosage: UNK
     Route: 048
  3. SOLIRIS [Suspect]
     Dosage: 900 MG, Q2W
     Route: 042
  4. SOLIRIS [Suspect]
     Indication: PAROXYSMAL NOCTURNAL HAEMOGLOBINURIA
     Dosage: UNK
     Route: 042
     Dates: start: 20091001

REACTIONS (2)
  - WEIGHT DECREASED [None]
  - HAEMOGLOBIN DECREASED [None]
